FAERS Safety Report 5049440-0 (Version None)
Quarter: 2006Q3

REPORT INFORMATION
  Report Type: 
  Country: None (occurrence: None)
  Receive Date: 20060712
  Receipt Date: 20060609
  Transmission Date: 20061208
  Serious: Yes (Hospitalization)
  Sender: FDA-Public Use
  Company Number: US-ROCHE-451168

PATIENT
  Age: 70 Year
  Sex: Female
  Weight: 108.4 kg

DRUGS (18)
  1. CAPECITABINE [Suspect]
     Indication: BREAST CANCER
     Dosage: ON DAYS 1 TO 14 EVERY 3 WEEKS FOR 4 CYCLES
     Route: 048
     Dates: start: 20060413, end: 20060527
  2. DOCETAXEL [Suspect]
     Indication: BREAST CANCER
     Dosage: REPEAT EVERY THREE WEEKS FOR FOUR CYCLES
     Route: 042
     Dates: start: 20060413, end: 20060612
  3. DOXORUBICIN HCL [Suspect]
     Indication: BREAST CANCER
     Dosage: REPEAT EVERY THREE WEEKS FOR FOUR CYCLES
     Route: 042
  4. CYCLOPHOSPHAMIDE [Suspect]
     Indication: BREAST CANCER
     Dosage: REPEAT EVERY THREE WEEKS FOR FOUR CYCLES
     Route: 042
  5. LASIX [Concomitant]
     Indication: HYPERTENSION
     Route: 048
  6. CLONIDINE [Concomitant]
     Indication: HYPERTENSION
     Route: 048
  7. CELEBREX [Concomitant]
     Indication: ARTHRITIS
     Route: 048
  8. INDERAL [Concomitant]
     Indication: HYPERTENSION
     Route: 048
  9. K-DUR 10 [Concomitant]
     Route: 048
  10. ACTOS [Concomitant]
     Route: 048
  11. HYDRALAZINE HCL [Concomitant]
     Indication: HYPERTENSION
     Route: 048
  12. ALLOPURINOL [Concomitant]
     Indication: GOUT
     Route: 048
  13. COMPAZINE [Concomitant]
     Indication: NAUSEA
     Dosage: 10MG 4 TIMES A DAY OR PRN
     Route: 048
     Dates: start: 20060309
  14. PERCOCET [Concomitant]
     Indication: PAIN
     Dosage: DOSE REPORTED AS 10/325, 1-2 TABLETS 4 TIMES A DAY.  PRN PAIN.
     Route: 048
     Dates: start: 20060511, end: 20060607
  15. HYDROCODONE [Concomitant]
     Indication: PAIN
  16. TRANQUILIZER NOS [Concomitant]
     Indication: PAIN
  17. DEXAMETHASONE TAB [Concomitant]
     Dosage: AS PER STUDY PROTOCOL: DEXAMETHASONE (8MG ORAL) GIVEN THE NIGHT BEFORE DOCETAXEL ADMINISTRATION.
     Route: 048
     Dates: start: 20060412
  18. DEXAMETHASONE TAB [Concomitant]
     Dosage: AS PER STUDY PROTOCOL: DEXAMETHASONE (10MG I.V.) ADMINISTERED 30 MINUTES PRIOR TO ANY DOCETAXEL.
     Route: 042
     Dates: start: 20060413

REACTIONS (18)
  - ATELECTASIS [None]
  - DEHYDRATION [None]
  - DRUG SCREEN POSITIVE [None]
  - HAEMATOCRIT DECREASED [None]
  - HAEMOGLOBIN DECREASED [None]
  - HYPOKALAEMIA [None]
  - HYPOTENSION [None]
  - HYPOURICAEMIA [None]
  - LOSS OF CONSCIOUSNESS [None]
  - NEUTROPHIL COUNT DECREASED [None]
  - RED BLOOD CELL COUNT DECREASED [None]
  - RIB FRACTURE [None]
  - ROAD TRAFFIC ACCIDENT [None]
  - SKIN LACERATION [None]
  - SYNCOPE [None]
  - TRANSIENT ISCHAEMIC ATTACK [None]
  - ULNA FRACTURE [None]
  - WHITE BLOOD CELL COUNT DECREASED [None]
